FAERS Safety Report 18643392 (Version 1)
Quarter: 2020Q4

REPORT INFORMATION
  Report Type: Spontaneous
  Country: CZ (occurrence: CZ)
  Receive Date: 20201221
  Receipt Date: 20201221
  Transmission Date: 20210114
  Serious: Yes (Death, Hospitalization, Other)
  Sender: FDA-Public Use
  Company Number: CZ-ELI_LILLY_AND_COMPANY-CZ202012006925

PATIENT
  Age: 67 Year
  Sex: Female
  Weight: 38.5 kg

DRUGS (29)
  1. DEXONA [DEXAMETHASONE] [Suspect]
     Active Substance: DEXAMETHASONE
     Indication: DIFFUSE LARGE B-CELL LYMPHOMA
     Dosage: UNK, UNKNOWN
     Route: 065
     Dates: start: 20200220
  2. GEMCITABINE HYDROCHLORIDE. [Suspect]
     Active Substance: GEMCITABINE HYDROCHLORIDE
     Indication: DIFFUSE LARGE B-CELL LYMPHOMA
     Dosage: UNK UNK, UNKNOWN
     Route: 065
     Dates: start: 20200220
  3. MABTHERA [Suspect]
     Active Substance: RITUXIMAB
     Dosage: 375 MG/M2, UNKNOWN
     Route: 041
     Dates: start: 20191220
  4. CYTARABINE. [Concomitant]
     Active Substance: CYTARABINE
     Dosage: UNK, UNKNOWN
  5. ZARZIO [Concomitant]
     Active Substance: FILGRASTIM
     Dosage: UNK, UNKNOWN
     Route: 058
  6. VEROSPIRON [Concomitant]
     Active Substance: SPIRONOLACTONE
     Route: 048
  7. CYTARABINE. [Concomitant]
     Active Substance: CYTARABINE
     Dosage: UNK, UNKNOWN
     Dates: start: 20190525
  8. ETOPOSIDE. [Concomitant]
     Active Substance: ETOPOSIDE
  9. TAZOCIN [Concomitant]
     Active Substance: PIPERACILLIN SODIUM\TAZOBACTAM SODIUM
     Indication: RASH
     Dosage: UNK, UNKNOWN
  10. POLATUZUMAB VEDOTIN. [Suspect]
     Active Substance: POLATUZUMAB VEDOTIN
     Dosage: 1.8 MG/KG
     Route: 042
     Dates: start: 20200313
  11. GRANEGIS [Concomitant]
     Active Substance: GRANISETRON HYDROCHLORIDE
     Indication: NAUSEA
     Dosage: 1 TBL IN CASE OF NAUSEA, MAX. EVERY 12 HOURS
     Route: 048
  12. HERPESIN [ACICLOVIR] [Concomitant]
     Indication: RASH
     Route: 048
  13. CISPLATIN. [Concomitant]
     Active Substance: CISPLATIN
     Dosage: UNK, UNKNOWN
  14. GEMZAR [Suspect]
     Active Substance: GEMCITABINE HYDROCHLORIDE
     Indication: DIFFUSE LARGE B-CELL LYMPHOMA
     Dosage: UNK UNK, UNKNOWN
     Route: 065
     Dates: start: 20200220
  15. BENDAMUSTINE [Suspect]
     Active Substance: BENDAMUSTINE
     Indication: PRODUCT USED FOR UNKNOWN INDICATION
     Dosage: 90 MG/M2, UNKNOWN
     Route: 065
     Dates: start: 20191220
  16. POLATUZUMAB VEDOTIN. [Suspect]
     Active Substance: POLATUZUMAB VEDOTIN
     Dosage: 1.8 MG/KG
     Route: 042
     Dates: start: 20200220
  17. MELPHALAN. [Concomitant]
     Active Substance: MELPHALAN
     Dosage: UNK, UNKNOWN
     Dates: start: 20190525
  18. KALIUM CHLORATUM [Concomitant]
     Active Substance: POTASSIUM CHLORIDE
     Indication: RASH
     Dosage: 500 MG, UNKNOWN
     Route: 048
  19. MABTHERA [Suspect]
     Active Substance: RITUXIMAB
     Indication: DIFFUSE LARGE B-CELL LYMPHOMA
     Dosage: 375 MG/M2, UNKNOWN
     Route: 041
     Dates: start: 20200220
  20. POLATUZUMAB VEDOTIN. [Suspect]
     Active Substance: POLATUZUMAB VEDOTIN
     Indication: PRODUCT USED FOR UNKNOWN INDICATION
     Dosage: 1.8 MG/KG, UNKNOWN
     Route: 042
     Dates: start: 20191220
  21. COTRIMOXAZOLE [Concomitant]
     Active Substance: SULFAMETHOXAZOLE\TRIMETHOPRIM
     Indication: RASH
     Route: 048
  22. FRAXIPARINE [Concomitant]
     Active Substance: NADROPARIN CALCIUM
     Route: 058
  23. MABTHERA [Suspect]
     Active Substance: RITUXIMAB
     Dosage: 375 MG/M2, UNKNOWN
     Route: 041
     Dates: start: 20200313
  24. CARMUSTINE. [Concomitant]
     Active Substance: CARMUSTINE
     Dosage: UNK, UNKNOWN
     Dates: start: 20190525
  25. SOLU-MEDRONE [Concomitant]
     Active Substance: METHYLPREDNISOLONE SODIUM SUCCINATE
     Dosage: UNK, UNKNOWN
  26. CISPLATIN. [Suspect]
     Active Substance: CISPLATIN
     Indication: DIFFUSE LARGE B-CELL LYMPHOMA
     Dosage: UNK UNK, UNKNOWN
     Route: 065
     Dates: start: 20200220
  27. MABTHERA [Suspect]
     Active Substance: RITUXIMAB
     Dosage: 375 MG/M2, UNKNOWN
     Route: 041
     Dates: start: 20200120
  28. POLATUZUMAB VEDOTIN. [Suspect]
     Active Substance: POLATUZUMAB VEDOTIN
     Dosage: 1.8 MG/KG
     Route: 042
     Dates: start: 20200120
  29. BLINCYTO [Concomitant]
     Active Substance: BLINATUMOMAB
     Indication: DIFFUSE LARGE B-CELL LYMPHOMA
     Dosage: UNK UNK, UNKNOWN
     Dates: start: 20191017

REACTIONS (24)
  - Dehydration [Unknown]
  - Cytopenia [Unknown]
  - Abdominal pain [Unknown]
  - Pulmonary oedema [Unknown]
  - Abscess [Recovered/Resolved]
  - Tongue disorder [Unknown]
  - Eating disorder [Unknown]
  - Hypokalaemia [Recovered/Resolved]
  - Clostridium colitis [Recovered/Resolved]
  - Gastroenteritis [Unknown]
  - Pneumonia [Not Recovered/Not Resolved]
  - Dry skin [Unknown]
  - Vomiting [Unknown]
  - Colitis [Recovered/Resolved]
  - Neutropenia [Unknown]
  - Infection [Fatal]
  - Dry mouth [Unknown]
  - Off label use [Unknown]
  - Diarrhoea [Unknown]
  - Hypotension [Unknown]
  - Tongue dry [Unknown]
  - Tongue coated [Unknown]
  - Weight decreased [Unknown]
  - Cough [Unknown]

NARRATIVE: CASE EVENT DATE: 20200110
